FAERS Safety Report 4350147-3 (Version None)
Quarter: 2004Q2

REPORT INFORMATION
  Report Type: 
  Country: None (occurrence: None)
  Receive Date: 20040429
  Receipt Date: 20040420
  Transmission Date: 20050107
  Serious: Yes (Other)
  Sender: FDA-Public Use
  Company Number: PHBS2004DE05612

PATIENT
  Age: 46 Year
  Sex: Male

DRUGS (4)
  1. MAPROTILINE HYDROCHLORIDE [Suspect]
     Indication: MAJOR DEPRESSION
     Dosage: 50 MG/D
     Route: 065
  2. MAPROTILINE HYDROCHLORIDE [Suspect]
     Dosage: 200M MG/D
     Route: 065
  3. MAPROTILINE HYDROCHLORIDE [Suspect]
     Dosage: 100 MG/D
     Route: 065
  4. LORMETAZEPAM [Concomitant]
     Route: 065

REACTIONS (2)
  - DIZZINESS [None]
  - VENTRICULAR EXTRASYSTOLES [None]
